FAERS Safety Report 7915274-X (Version None)
Quarter: 2011Q4

REPORT INFORMATION
  Report Type: 
  Country: None (occurrence: None)
  Receive Date: 20111115
  Receipt Date: 20110807
  Transmission Date: 20120403
  Serious: No
  Sender: FDA-Public Use
  Company Number: US-BAYER-2011-072566

PATIENT
  Sex: Male

DRUGS (2)
  1. MUSCLE RUB [Concomitant]
     Indication: ARTHRALGIA
     Dosage: UNK
     Dates: start: 20110807
  2. ALEVE (CAPLET) [Suspect]
     Indication: ARTHRALGIA
     Dosage: UNK
     Dates: start: 20110807

REACTIONS (1)
  - ARTHRALGIA [None]
